FAERS Safety Report 17001374 (Version 1)
Quarter: 2019Q4

REPORT INFORMATION
  Report Type: Spontaneous
  Country: US (occurrence: US)
  Receive Date: 20191106
  Receipt Date: 20191106
  Transmission Date: 20200122
  Serious: Yes (Other)
  Sender: FDA-Public Use
  Company Number: US-SHIRE-US201936931

PATIENT
  Age: 71 Year
  Sex: Female

DRUGS (2)
  1. ENSURE [Concomitant]
     Active Substance: AMINO ACIDS\DEXTROSE\ELECTROLYTES NOS\SOYBEAN OIL\VITAMINS
     Indication: PRODUCT USED FOR UNKNOWN INDICATION
  2. MOTEGRITY [Suspect]
     Active Substance: PRUCALOPRIDE SUCCINATE
     Indication: CONSTIPATION
     Dosage: 2 MILLIGRAM, 1X/DAY:QD
     Route: 065

REACTIONS (11)
  - Abdominal distension [Unknown]
  - Peripheral swelling [Recovering/Resolving]
  - Weight decreased [Unknown]
  - Gastrointestinal motility disorder [Unknown]
  - Headache [Unknown]
  - Herpes zoster [Unknown]
  - Rib fracture [Unknown]
  - Oedema peripheral [Recovering/Resolving]
  - Pneumothorax [Unknown]
  - Hypokinesia [Unknown]
  - Joint swelling [Unknown]

NARRATIVE: CASE EVENT DATE: 201804
